FAERS Safety Report 19051791 (Version 1)
Quarter: 2021Q1

REPORT INFORMATION
  Report Type: Spontaneous
  Country: US (occurrence: US)
  Receive Date: 20210324
  Receipt Date: 20210324
  Transmission Date: 20210420
  Serious: No
  Sender: FDA-Public Use
  Company Number: US-BAYER-2021-109418

PATIENT
  Age: 78 Year
  Sex: Female
  Weight: 140 kg

DRUGS (1)
  1. MIRALAX [Suspect]
     Active Substance: POLYETHYLENE GLYCOL 3350
     Indication: PRODUCT USE IN UNAPPROVED INDICATION

REACTIONS (3)
  - Product prescribing error [None]
  - Off label use [None]
  - Product use in unapproved indication [None]
